FAERS Safety Report 5790863-X (Version None)
Quarter: 2008Q2

REPORT INFORMATION
  Report Type: 
  Country: None (occurrence: None)
  Receive Date: 20080626
  Receipt Date: 20080507
  Transmission Date: 20081010
  Serious: No
  Sender: FDA-Public Use
  Company Number: A0726760A

PATIENT
  Age: 47 Year
  Sex: Female
  Weight: 61 kg

DRUGS (2)
  1. ALLI [Suspect]
  2. ORTHO CYCLEN-21 [Concomitant]

REACTIONS (2)
  - MENSTRUATION DELAYED [None]
  - POLYMENORRHOEA [None]
